FAERS Safety Report 5196902-1 (Version None)
Quarter: 2007Q1

REPORT INFORMATION
  Report Type: 
  Country: None (occurrence: None)
  Receive Date: 20070103
  Receipt Date: 20061222
  Transmission Date: 20070707
  Serious: Yes (Hospitalization)
  Sender: FDA-Public Use
  Company Number: FR-ROCHE-469955

PATIENT
  Age: 52 Year
  Sex: Male
  Weight: 78 kg

DRUGS (5)
  1. FUZEON [Suspect]
     Dosage: FORM REPORTED AS INJECTABLE SOLUTION.
     Route: 058
     Dates: start: 20060215
  2. TRUVADA [Suspect]
     Route: 048
     Dates: start: 20060215
  3. NORVIR [Concomitant]
     Dosage: ROUTE REPORTED AS OS (MOUTH)
     Route: 050
  4. TMC [Concomitant]
     Dosage: DOSE REPORTED AS 114
     Route: 050
     Dates: start: 20060515, end: 20061015
  5. KALETRA [Concomitant]
     Dates: end: 20061015

REACTIONS (2)
  - ARTHRALGIA [None]
  - RENAL FAILURE ACUTE [None]
